FAERS Safety Report 17577485 (Version 1)
Quarter: 2020Q1

REPORT INFORMATION
  Report Type: Spontaneous
  Country: US (occurrence: US)
  Receive Date: 20200319
  Receipt Date: 20200319
  Transmission Date: 20200409
  Serious: Yes (Other)
  Sender: FDA-Public Use
  Company Number: None

PATIENT
  Age: 55 Year
  Sex: Female

DRUGS (10)
  1. WARFARIN [Concomitant]
     Active Substance: WARFARIN
  2. SPIRONOLACTONE. [Suspect]
     Active Substance: SPIRONOLACTONE
  3. TORSEMIDE. [Concomitant]
     Active Substance: TORSEMIDE
  4. OPSUMIT [Suspect]
     Active Substance: MACITENTAN
     Indication: PULMONARY ARTERIAL HYPERTENSION
     Route: 048
     Dates: start: 201702
  5. TYVASO [Concomitant]
     Active Substance: TREPROSTINIL
  6. SILDENAFIL. [Suspect]
     Active Substance: SILDENAFIL
  7. CHLORTHALIDONE. [Concomitant]
     Active Substance: CHLORTHALIDONE
  8. PRAMIPEXOLE. [Concomitant]
     Active Substance: PRAMIPEXOLE
  9. GABAPENTIN. [Concomitant]
     Active Substance: GABAPENTIN
  10. KLOR-CON [Concomitant]
     Active Substance: POTASSIUM CHLORIDE

REACTIONS (4)
  - Nausea [None]
  - Diverticulitis [None]
  - Abdominal pain [None]
  - Diarrhoea [None]

NARRATIVE: CASE EVENT DATE: 20200228
